FAERS Safety Report 9401340 (Version 1)
Quarter: 2013Q3

REPORT INFORMATION
  Report Type: Spontaneous
  Country: US (occurrence: US)
  Receive Date: 20130715
  Receipt Date: 20130715
  Transmission Date: 20140515
  Serious: No
  Sender: FDA-Public Use
  Company Number: US-B.I. PHARMACEUTICALS,INC./RIDGEFIELD-2013-BI-20234BP

PATIENT
  Age: 73 Year
  Sex: Female

DRUGS (6)
  1. COMBIVENT [Suspect]
     Indication: CHRONIC OBSTRUCTIVE PULMONARY DISEASE
     Dosage: STRENGTH: 20 MCG / 100 MCG;
     Route: 055
     Dates: start: 2013
  2. PREDNISONE [Concomitant]
     Route: 048
  3. VITAMINS [Concomitant]
     Route: 048
  4. SINGULAIR [Concomitant]
     Route: 048
  5. MUCINEX [Concomitant]
     Route: 048
  6. CLARITIN [Concomitant]
     Route: 048

REACTIONS (3)
  - Dyspnoea [Not Recovered/Not Resolved]
  - Drug ineffective [Not Recovered/Not Resolved]
  - Product quality issue [Not Recovered/Not Resolved]
